FAERS Safety Report 8543944-1 (Version None)
Quarter: 2012Q3

REPORT INFORMATION
  Report Type: 
  Country: None (occurrence: None)
  Receive Date: 20120717
  Receipt Date: 20120703
  Transmission Date: 20120928
  Serious: Yes (Hospitalization)
  Sender: FDA-Public Use
  Company Number: JPI-P-020264

PATIENT
  Age: 54 Year
  Sex: Male

DRUGS (2)
  1. XYREM [Suspect]
     Indication: NARCOLEPSY
     Dosage: 4.5 GM (2.25 GM, 2 IN 1 D), ORAL; TITRATING DOSE, ORAL; 6 GM (3 GM, 2 IN 1 D), ORAL
     Route: 048
     Dates: start: 20091229
  2. XYREM [Suspect]
     Indication: NARCOLEPSY
     Dosage: 4.5 GM (2.25 GM, 2 IN 1 D), ORAL; TITRATING DOSE, ORAL; 6 GM (3 GM, 2 IN 1 D), ORAL
     Route: 048
     Dates: start: 20100423

REACTIONS (2)
  - ARTERIAL OCCLUSIVE DISEASE [None]
  - BACK PAIN [None]
